FAERS Safety Report 16759279 (Version 1)
Quarter: 2019Q3

REPORT INFORMATION
  Report Type: Spontaneous
  Country: BR (occurrence: BR)
  Receive Date: 20190830
  Receipt Date: 20190830
  Transmission Date: 20191005
  Serious: Yes (Other)
  Sender: FDA-Public Use
  Company Number: BR-TORRENT-00005083

PATIENT
  Sex: Male

DRUGS (2)
  1. MENELAT [Suspect]
     Active Substance: MIRTAZAPINE
     Indication: PRODUCT USED FOR UNKNOWN INDICATION
     Dosage: HALF TABLET DAILY
     Dates: start: 20190821, end: 20190822
  2. ESCITALOPRAM [Suspect]
     Active Substance: ESCITALOPRAM OXALATE
     Indication: PRODUCT USED FOR UNKNOWN INDICATION
     Dosage: QNE TABLET DAILY
     Route: 048

REACTIONS (8)
  - Dyspnoea [Not Recovered/Not Resolved]
  - Blood pressure decreased [Unknown]
  - Product prescribing error [Unknown]
  - Insomnia [Unknown]
  - Somnolence [Not Recovered/Not Resolved]
  - Pallor [Not Recovered/Not Resolved]
  - Product administration error [Unknown]
  - Decreased appetite [Not Recovered/Not Resolved]

NARRATIVE: CASE EVENT DATE: 20190821
